FAERS Safety Report 25471438 (Version 1)
Quarter: 2025Q2

REPORT INFORMATION
  Report Type: Spontaneous
  Country: US (occurrence: US)
  Receive Date: 20250624
  Receipt Date: 20250624
  Transmission Date: 20250717
  Serious: No
  Sender: GLENMARK
  Company Number: US-GLENMARK PHARMACEUTICALS-2024GMK094243

PATIENT

DRUGS (1)
  1. MUPIROCIN [Suspect]
     Active Substance: MUPIROCIN
     Indication: Preoperative care
     Dosage: UNK, BID (TWICE DAILY FOR 5 DAYS)
     Route: 045
     Dates: start: 20240919

REACTIONS (2)
  - Product use in unapproved indication [Unknown]
  - Product use issue [Unknown]
